FAERS Safety Report 17452952 (Version 5)
Quarter: 2022Q1

REPORT INFORMATION
  Report Type: Report from Study
  Country: GB (occurrence: GB)
  Receive Date: 20200224
  Receipt Date: 20220107
  Transmission Date: 20220423
  Serious: Yes (Hospitalization, Other)
  Sender: FDA-Public Use
  Company Number: GB-SHIRE-GB202006662

PATIENT
  Sex: Male

DRUGS (2)
  1. IDURSULFASE [Suspect]
     Active Substance: IDURSULFASE
     Indication: Mucopolysaccharidosis II
     Dosage: 0.48 MILLIGRAM/KILOGRAM, 1X/WEEK
     Route: 042
     Dates: start: 20070627
  2. IDURSULFASE [Suspect]
     Active Substance: IDURSULFASE
     Dosage: 0.45 MILLIGRAM/KILOGRAM, 1X/WEEK
     Route: 042
     Dates: start: 20121217

REACTIONS (2)
  - Rhinovirus infection [Recovered/Resolved with Sequelae]
  - Staphylococcal infection [Recovered/Resolved with Sequelae]

NARRATIVE: CASE EVENT DATE: 20190524
